FAERS Safety Report 8826900 (Version 3)
Quarter: 2014Q3

REPORT INFORMATION
  Report Type: Spontaneous
  Country: FR (occurrence: US)
  Receive Date: 20121005
  Receipt Date: 20140804
  Transmission Date: 20150326
  Serious: Yes (Other)
  Sender: FDA-Public Use
  Company Number: FR-ALEXION-A201201828

PATIENT

DRUGS (1)
  1. SOLIRIS [Suspect]
     Active Substance: ECULIZUMAB
     Indication: HAEMOLYTIC URAEMIC SYNDROME
     Dosage: UNK
     Route: 042

REACTIONS (5)
  - Clostridium difficile infection [Unknown]
  - Platelet count decreased [Unknown]
  - Condition aggravated [Unknown]
  - Haemolytic uraemic syndrome [Unknown]
  - Off label use [Unknown]
